FAERS Safety Report 9749384 (Version 1)
Quarter: 2013Q4

REPORT INFORMATION
  Report Type: Spontaneous
  Country: ES (occurrence: ES)
  Receive Date: 20131212
  Receipt Date: 20131212
  Transmission Date: 20140711
  Serious: Yes (Other)
  Sender: FDA-Public Use
  Company Number: ES-B.I. PHARMACEUTICALS,INC./RIDGEFIELD-2013-BI-41518YA

PATIENT
  Age: 41 Year
  Sex: Male

DRUGS (1)
  1. OMNIC [Suspect]
     Dosage: 0.4 MG
     Route: 048
     Dates: start: 20100514, end: 201311

REACTIONS (1)
  - Azoospermia [Recovered/Resolved]
